FAERS Safety Report 6816160 (Version 5)
Quarter: 2013Q3

REPORT INFORMATION
  Report Type: Spontaneous
  Country: GB (occurrence: None)
  Receive Date: 20081110
  Receipt Date: 20130729
  Transmission Date: 20140515
  Serious: Yes (Hospitalization)
  Sender: FDA-Public Use
  Company Number: 2008-04099

PATIENT
  Age: 58 Year
  Sex: Female

DRUGS (4)
  1. VELCADE [Suspect]
     Indication: PLASMA CELL MYELOMA
     Dosage: 2.1 MG, INTRAVENOUS
     Route: 042
     Dates: start: 20080929, end: 20081024
  2. SULFAMETHOXAZOLE AND TRIMETHOPRIM [Concomitant]
  3. FOLIC ACID [Concomitant]
  4. DAPSONE [Concomitant]

REACTIONS (11)
  - Bronchiectasis [None]
  - Emphysema [None]
  - Chest discomfort [None]
  - Chest pain [None]
  - Constipation [None]
  - Urinary retention [None]
  - Gastritis [None]
  - Oral herpes [None]
  - Neuropathy peripheral [None]
  - Abdominal pain upper [None]
  - Abdominal pain upper [None]
